FAERS Safety Report 11077517 (Version 3)
Quarter: 2016Q1

REPORT INFORMATION
  Report Type: Spontaneous
  Country: US (occurrence: US)
  Receive Date: 20150430
  Receipt Date: 20160303
  Transmission Date: 20160525
  Serious: No
  Sender: FDA-Public Use
  Company Number: US-JNJFOC-20150209209

PATIENT
  Sex: Female
  Weight: 58.97 kg

DRUGS (2)
  1. MANY OTHER UNSPECIFIED MEDICATIONS [Concomitant]
     Active Substance: UNSPECIFIED INGREDIENT
     Indication: PAIN
     Route: 065
  2. TYLENOL WITH CODEINE [Suspect]
     Active Substance: ACETAMINOPHEN\CODEINE PHOSPHATE
     Indication: PAIN
     Dosage: 300/60MG/ TABLETS/ 300/60MG/ EVERY 4 HOURS/ PO - ORAL
     Route: 048
     Dates: start: 1995

REACTIONS (8)
  - Body height decreased [Not Recovered/Not Resolved]
  - Intervertebral disc compression [Not Recovered/Not Resolved]
  - Therapy change [Unknown]
  - Incorrect drug administration duration [Unknown]
  - Spinal disorder [Not Recovered/Not Resolved]
  - Drug effect incomplete [Unknown]
  - Intervertebral disc space narrowing [Not Recovered/Not Resolved]
  - Drug dose omission [Unknown]

NARRATIVE: CASE EVENT DATE: 2014
